FAERS Safety Report 8734943 (Version 2)
Quarter: 2013Q2

REPORT INFORMATION
  Report Type: Spontaneous
  Country: IT (occurrence: IT)
  Receive Date: 20120821
  Receipt Date: 20130529
  Transmission Date: 20140414
  Serious: Yes (Hospitalization, Other)
  Sender: FDA-Public Use
  Company Number: PHHY2012IT070091

PATIENT
  Age: 50 Year
  Sex: Male

DRUGS (3)
  1. KETOPROFEN [Suspect]
     Indication: NECK PAIN
     Dosage: 200 MG/DAY
  2. KETOPROFEN [Interacting]
     Indication: SPINAL OSTEOARTHRITIS
  3. MINIRIN [Interacting]
     Dosage: 0.06 MG, QID

REACTIONS (12)
  - Hyponatraemia [Recovered/Resolved]
  - Coma [Recovered/Resolved]
  - Grand mal convulsion [Recovered/Resolved]
  - Nausea [Recovered/Resolved]
  - Asthenia [Recovered/Resolved]
  - Vomiting [Recovered/Resolved]
  - Water intoxication [Recovered/Resolved]
  - Metabolic acidosis [Recovered/Resolved]
  - Rhabdomyolysis [Recovered/Resolved]
  - Psychomotor hyperactivity [Recovered/Resolved]
  - Loss of consciousness [Recovered/Resolved]
  - Drug interaction [Unknown]
